FAERS Safety Report 7687653-X (Version None)
Quarter: 2011Q3

REPORT INFORMATION
  Report Type: 
  Country: None (occurrence: None)
  Receive Date: 20110817
  Receipt Date: 20110805
  Transmission Date: 20111222
  Serious: Yes (Other)
  Sender: FDA-Public Use
  Company Number: US-ELI_LILLY_AND_COMPANY-US201108002990

PATIENT
  Sex: Male

DRUGS (8)
  1. EFFIENT [Suspect]
     Indication: STENT PLACEMENT
     Dosage: 10 MG, QD
     Route: 065
     Dates: start: 20110204
  2. LISINOPRIL [Concomitant]
     Dosage: 10 MG, QD
     Route: 065
  3. FLONASE [Concomitant]
     Dosage: 50 UG, QD
     Route: 045
  4. FEXOFENADINE [Concomitant]
     Dosage: 180 MG, QD
     Route: 065
  5. OMEPRAZOLE [Concomitant]
     Dosage: 40 MG, BID
     Route: 065
  6. ASPIRIN [Concomitant]
     Dosage: 81 MG, QD
     Route: 065
  7. TOPROL-XL [Concomitant]
     Dosage: 50 MG, QD
     Route: 065
  8. LIPITOR [Concomitant]
     Dosage: 40 MG, QD
     Route: 065

REACTIONS (2)
  - CORONARY ARTERY OCCLUSION [None]
  - CHEST PAIN [None]
